FAERS Safety Report 7557380-8 (Version None)
Quarter: 2011Q2

REPORT INFORMATION
  Report Type: 
  Country: None (occurrence: None)
  Receive Date: 20110620
  Receipt Date: 20110603
  Transmission Date: 20111010
  Serious: No
  Sender: FDA-Public Use
  Company Number: US-B.I. PHARMACEUTICALS,INC./RIDGEFIELD-2011-BP-14692BP

PATIENT
  Age: 65 Year
  Sex: Male

DRUGS (11)
  1. NORVASC [Concomitant]
     Indication: HYPERTENSION
     Dosage: 10 MG
     Dates: start: 20010101
  2. PRADAXA [Suspect]
     Indication: ATRIAL FIBRILLATION
     Dosage: 300 MG
     Route: 048
     Dates: start: 20110513, end: 20110515
  3. TRICOR [Concomitant]
     Indication: HYPERTENSION
     Dosage: 48 MG
     Dates: start: 20010101
  4. PROSCAR [Concomitant]
     Dosage: 5 MG
  5. TIKOSYN [Concomitant]
     Indication: ATRIAL FIBRILLATION
     Dosage: 400 MCG
  6. PROAIR HFA [Concomitant]
     Indication: ASTHMA
     Dates: start: 20090101
  7. BENICAR [Concomitant]
     Indication: HYPERTENSION
     Dosage: 40 MG
     Dates: start: 20010101
  8. ASPIRIN [Concomitant]
     Indication: ROUTINE HEALTH MAINTENANCE
  9. ZYRTEC [Concomitant]
     Indication: MULTIPLE ALLERGIES
     Dosage: 10 MG
  10. METFORMIN HCL [Concomitant]
     Indication: DIABETES MELLITUS
     Dosage: 500 MG
     Dates: start: 20040101
  11. XALATAN [Concomitant]
     Indication: GLAUCOMA
     Dates: start: 20040101

REACTIONS (2)
  - HAEMATURIA [None]
  - URINE ODOUR ABNORMAL [None]
